FAERS Safety Report 9224998 (Version 1)
Quarter: 2013Q2

REPORT INFORMATION
  Report Type: Spontaneous
  Country: GB (occurrence: GB)
  Receive Date: 20130411
  Receipt Date: 20130411
  Transmission Date: 20140414
  Serious: Yes (Other)
  Sender: FDA-Public Use
  Company Number: GB-MYLANLABS-2013S1007364

PATIENT
  Age: 61 Year
  Sex: Female
  Weight: 70 kg

DRUGS (4)
  1. BISOPROLOL [Suspect]
     Indication: ATRIAL FIBRILLATION
     Dates: end: 201301
  2. BISOPROLOL [Suspect]
     Indication: CARDIAC FAILURE
     Dates: end: 201301
  3. ASPIRIN [Concomitant]
     Indication: ATRIAL FIBRILLATION
     Dates: start: 2006
  4. ASPIRIN [Concomitant]
     Indication: CARDIAC FAILURE
     Dates: start: 2006

REACTIONS (5)
  - Abdominal distension [Recovered/Resolved]
  - Diarrhoea [Recovered/Resolved]
  - Feeling abnormal [Recovered/Resolved]
  - Malaise [Recovered/Resolved]
  - Product substitution issue [Unknown]
